FAERS Safety Report 23721878 (Version 2)
Quarter: 2024Q2

REPORT INFORMATION
  Report Type: Spontaneous
  Country: CN (occurrence: CN)
  Receive Date: 20240409
  Receipt Date: 20240410
  Transmission Date: 20240715
  Serious: Yes (Death, Hospitalization, Other)
  Sender: FDA-Public Use
  Company Number: CN-SANOFI-02002237

PATIENT
  Age: 88 Year
  Sex: Female

DRUGS (1)
  1. LANTUS SOLOSTAR [Suspect]
     Active Substance: INSULIN GLARGINE
     Indication: Diabetes mellitus
     Dosage: 10 IU, QD

REACTIONS (6)
  - Multiple organ dysfunction syndrome [Fatal]
  - Diabetic foot [Fatal]
  - Condition aggravated [Fatal]
  - Feeding disorder [Unknown]
  - Arteriosclerosis [Unknown]
  - Hypoglycaemia [Unknown]
